FAERS Safety Report 25030300 (Version 3)
Quarter: 2025Q2

REPORT INFORMATION
  Report Type: Spontaneous
  Country: FR (occurrence: FR)
  Receive Date: 20250303
  Receipt Date: 20250402
  Transmission Date: 20250717
  Serious: Yes (Other)
  Sender: AMGEN
  Company Number: FR-AMGEN-FRASP2025038490

PATIENT
  Age: 37 Year
  Sex: Male

DRUGS (3)
  1. OTEZLA [Suspect]
     Active Substance: APREMILAST
     Indication: Behcet^s syndrome
     Route: 065
  2. OTEZLA [Suspect]
     Active Substance: APREMILAST
     Route: 065
  3. COLCHICINE [Concomitant]
     Active Substance: COLCHICINE
     Route: 065

REACTIONS (9)
  - Hepatic cytolysis [Unknown]
  - Leukopenia [Unknown]
  - Neutropenia [Not Recovered/Not Resolved]
  - Cytopenia [Not Recovered/Not Resolved]
  - Headache [Recovered/Resolved]
  - Abdominal pain [Unknown]
  - Diarrhoea [Unknown]
  - Lymphopenia [Not Recovered/Not Resolved]
  - C-reactive protein increased [Not Recovered/Not Resolved]
